FAERS Safety Report 8575891-3 (Version None)
Quarter: 2012Q3

REPORT INFORMATION
  Report Type: 
  Country: None (occurrence: None)
  Receive Date: 20120807
  Receipt Date: 20120727
  Transmission Date: 20120928
  Serious: Yes (Other)
  Sender: FDA-Public Use
  Company Number: US-BAYER-2011-026915

PATIENT
  Age: 17 Year
  Sex: Female

DRUGS (6)
  1. AMOXICILLIN [Concomitant]
     Dosage: 500 MG, TID
  2. YASMIN [Suspect]
     Dosage: UNK
     Route: 048
     Dates: start: 20060101, end: 20090101
  3. IBUPROFEN [Concomitant]
     Dosage: 200 MG, TID
  4. CIPRODEX [Concomitant]
     Dosage: UNK
     Dates: start: 20080724
  5. NEXIUM [Concomitant]
     Dosage: 40 MG, DAILY
  6. YAZ [Suspect]
     Dosage: UNK
     Route: 048
     Dates: start: 20060101, end: 20090101

REACTIONS (8)
  - PAIN [None]
  - ANXIETY [None]
  - CHOLECYSTECTOMY [None]
  - ANHEDONIA [None]
  - GENERAL PHYSICAL HEALTH DETERIORATION [None]
  - INJURY [None]
  - EMOTIONAL DISTRESS [None]
  - CHOLECYSTITIS CHRONIC [None]
